FAERS Safety Report 15552225 (Version 1)
Quarter: 2018Q4

REPORT INFORMATION
  Report Type: Report from Study
  Country: CA (occurrence: CA)
  Receive Date: 20181025
  Receipt Date: 20181025
  Transmission Date: 20190205
  Serious: Yes (Other)
  Sender: FDA-Public Use
  Company Number: CA-JNJFOC-20181030576

PATIENT
  Age: 15 Year
  Sex: Male
  Weight: 47.9 kg

DRUGS (1)
  1. REMICADE [Suspect]
     Active Substance: INFLIXIMAB
     Indication: CROHN^S DISEASE
     Dosage: STRENGTH = 100 MG MG
     Route: 042
     Dates: start: 201804

REACTIONS (2)
  - Fall [Recovering/Resolving]
  - Tibia fracture [Recovering/Resolving]

NARRATIVE: CASE EVENT DATE: 20180921
